FAERS Safety Report 24631679 (Version 1)
Quarter: 2024Q4

REPORT INFORMATION
  Report Type: Spontaneous
  Country: DE (occurrence: DE)
  Receive Date: 20241118
  Receipt Date: 20241118
  Transmission Date: 20250115
  Serious: Yes (Other)
  Sender: BRISTOL-MYERS SQUIBB COMPANY
  Company Number: DE-BRISTOL-MYERS SQUIBB COMPANY-2024-176519

PATIENT
  Age: 71 Year
  Sex: Male

DRUGS (3)
  1. OPDIVO [Suspect]
     Active Substance: NIVOLUMAB
     Indication: Gastric cancer
     Dates: start: 20220126, end: 20220712
  2. OPDIVO [Suspect]
     Active Substance: NIVOLUMAB
     Dates: start: 20220503, end: 20220712
  3. OPDIVO [Suspect]
     Active Substance: NIVOLUMAB
     Dates: start: 202208, end: 202402

REACTIONS (1)
  - Normal pressure hydrocephalus [Unknown]
